FAERS Safety Report 8153593-5 (Version None)
Quarter: 2012Q1

REPORT INFORMATION
  Report Type: 
  Country: None (occurrence: None)
  Receive Date: 20120216
  Receipt Date: 20120216
  Transmission Date: 20120608
  Serious: No
  Sender: FDA-Public Use
  Company Number: None

PATIENT
  Age: 43 Year
  Sex: Male
  Weight: 104.5 kg

DRUGS (3)
  1. LEVAQUIN [Suspect]
     Indication: BACTERIAL INFECTION
     Dosage: 500 MG 30 PILLS 14 PILLS ORAL
     Route: 048
     Dates: start: 20031029, end: 20031111
  2. LEVAQUIN [Suspect]
     Indication: BACTERIAL INFECTION
     Dosage: 500 MG 30 PILLS 14 PILLS ORAL
     Route: 048
     Dates: start: 20030401, end: 20030430
  3. METHYLPREDNISOLONE [Concomitant]

REACTIONS (3)
  - BACK PAIN [None]
  - PAIN IN EXTREMITY [None]
  - SCIATICA [None]
